FAERS Safety Report 7071347-8 (Version None)
Quarter: 2010Q4

REPORT INFORMATION
  Report Type: 
  Country: None (occurrence: None)
  Receive Date: 20101029
  Receipt Date: 20101019
  Transmission Date: 20110411
  Serious: Yes (Death, Other)
  Sender: FDA-Public Use
  Company Number: FI-JNJFOC-20100901682

PATIENT
  Age: 70 Year
  Sex: Male

DRUGS (9)
  1. REMICADE [Suspect]
     Indication: COLITIS ULCERATIVE
     Dosage: 4TH DOSE
     Route: 042
  2. REMICADE [Suspect]
     Route: 042
  3. REMICADE [Suspect]
     Dosage: 2ND AND 3RD DOSES ADMINISTERED ON UNKNOWN DATES
     Route: 042
  4. ATENBLOCK [Concomitant]
  5. PERINDOPRIL ERBUMINE [Concomitant]
  6. NITROGLYCERIN [Concomitant]
  7. ASACOL [Concomitant]
  8. AZAMUN [Concomitant]
  9. PREDNISOLONE [Concomitant]

REACTIONS (4)
  - DEATH [None]
  - LEUKAEMIA [None]
  - PANCYTOPENIA [None]
  - SEPSIS [None]
